FAERS Safety Report 10994241 (Version 1)
Quarter: 2015Q2

REPORT INFORMATION
  Report Type: Spontaneous
  Country: SE (occurrence: SE)
  Receive Date: 20150407
  Receipt Date: 20150407
  Transmission Date: 20150821
  Serious: Yes (Other)
  Sender: FDA-Public Use
  Company Number: SE-WATSON-2015-07097

PATIENT
  Age: 26 Year
  Sex: Female

DRUGS (3)
  1. VALACICLOVIR ACTAVIS [Suspect]
     Active Substance: VALACYCLOVIR HYDROCHLORIDE
     Indication: HERPES SIMPLEX
     Dosage: 500 MG, BID
     Route: 048
     Dates: start: 2014, end: 2014
  2. VALACICLOVIR SANDOZ [Suspect]
     Active Substance: VALACYCLOVIR HYDROCHLORIDE
     Indication: HERPES SIMPLEX
     Dosage: 250 MG, BID
     Route: 048
     Dates: end: 20141208
  3. VALACICLOVIR ORION [Suspect]
     Active Substance: VALACYCLOVIR HYDROCHLORIDE
     Indication: HERPES SIMPLEX
     Dosage: 500 MG, BID
     Route: 048
     Dates: start: 20140718

REACTIONS (5)
  - Nausea [Recovered/Resolved]
  - Nightmare [Recovered/Resolved]
  - Musculoskeletal stiffness [Recovered/Resolved]
  - Confusional state [Recovered/Resolved]
  - Dizziness [Recovered/Resolved]

NARRATIVE: CASE EVENT DATE: 2014
